FAERS Safety Report 4713349-X (Version None)
Quarter: 2005Q3

REPORT INFORMATION
  Report Type: 
  Country: None (occurrence: None)
  Receive Date: 20050713
  Receipt Date: 20050708
  Transmission Date: 20060218
  Serious: Yes (Other)
  Sender: FDA-Public Use
  Company Number: ES-GLAXOSMITHKLINE-B0387452A

PATIENT
  Age: 65 Year
  Sex: Female

DRUGS (6)
  1. VENTOLIN [Suspect]
     Indication: BRONCHITIS
     Dosage: 1.2MG PER DAY
     Route: 055
     Dates: start: 20050520
  2. ENOXAPARIN SODIUM [Suspect]
     Indication: PROPHYLAXIS
     Dosage: 40MG PER DAY
     Route: 058
     Dates: start: 20050519, end: 20050606
  3. ENALAPRIL MALEATE [Suspect]
     Indication: ESSENTIAL HYPERTENSION
     Dosage: 20MG PER DAY
     Route: 048
     Dates: start: 20050523
  4. HYDROCHLOROTHIAZIDE [Suspect]
     Indication: ESSENTIAL HYPERTENSION
     Dosage: 50MG PER DAY
     Route: 048
     Dates: start: 20050524
  5. ALPRAZOLAM [Suspect]
     Indication: ANXIETY
     Dosage: 1.3MG PER DAY
     Route: 048
     Dates: start: 20050520
  6. AUGMENTIN '125' [Suspect]
     Indication: BACTERIAL INFECTION
     Dosage: 3G PER DAY
     Route: 042
     Dates: start: 20050520, end: 20050525

REACTIONS (1)
  - HEPATITIS CHOLESTATIC [None]
